FAERS Safety Report 6566692-6 (Version None)
Quarter: 2010Q1

REPORT INFORMATION
  Report Type: 
  Country: None (occurrence: None)
  Receive Date: 20100202
  Receipt Date: 20100129
  Transmission Date: 20100710
  Serious: Yes (Other)
  Sender: FDA-Public Use
  Company Number: DE-ROCHE-682662

PATIENT
  Sex: Female
  Weight: 58 kg

DRUGS (1)
  1. TRASTUZUMAB [Suspect]
     Dosage: DOSING AMOUNT 464 MG; 160 ML /H VIA PERIPHERAL VEIN CATHETER
     Route: 042
     Dates: start: 20090426

REACTIONS (3)
  - ABDOMINAL PAIN [None]
  - FLUSHING [None]
  - RESPIRATORY DISTRESS [None]
